FAERS Safety Report 19512388 (Version 1)
Quarter: 2021Q3

REPORT INFORMATION
  Report Type: Spontaneous
  Country: FR (occurrence: FR)
  Receive Date: 20210709
  Receipt Date: 20210709
  Transmission Date: 20211014
  Serious: Yes (Hospitalization)
  Sender: FDA-Public Use
  Company Number: FR-TEVA-2021-FR-1931256

PATIENT
  Age: 46 Year
  Sex: Male

DRUGS (1)
  1. DOXORUBICIN [Suspect]
     Active Substance: DOXORUBICIN
     Indication: FIBROUS HISTIOCYTOMA
     Dosage: TOTAL 7 INJECTION
     Route: 042
     Dates: start: 2018

REACTIONS (5)
  - Constipation [Recovered/Resolved]
  - Fungal infection [Recovered/Resolved]
  - Alopecia [Recovered/Resolved]
  - Asthenia [Recovered/Resolved]
  - Decreased appetite [Recovered/Resolved]
